FAERS Safety Report 6052649-0 (Version None)
Quarter: 2009Q1

REPORT INFORMATION
  Report Type: 
  Country: None (occurrence: None)
  Receive Date: 20090127
  Receipt Date: 20090119
  Transmission Date: 20090719
  Serious: Yes (Other)
  Sender: FDA-Public Use
  Company Number: US-JNJFOC-20090104496

PATIENT
  Sex: Male
  Weight: 86.18 kg

DRUGS (6)
  1. FENTANYL TRANSDERMAL SYSTEM [Suspect]
     Route: 062
  2. FENTANYL TRANSDERMAL SYSTEM [Suspect]
     Indication: BACK PAIN
     Route: 062
  3. EFFEXAR XR [Concomitant]
     Indication: DEPRESSION
     Dosage: 2 CAPSULES OF 150MG AND 1 CAPSULE OF 75 MG TOTAL (375MG)
     Route: 048
  4. XANAX [Concomitant]
     Indication: PANIC DISORDER
     Route: 048
  5. SEROQUEL [Concomitant]
     Indication: SLEEP DISORDER THERAPY
     Route: 048
  6. PERCOCET [Concomitant]
     Indication: PAIN
     Dosage: 10/325MG TABLET/10/325MG 4 TIMES A DAY/ORAL
     Route: 048

REACTIONS (7)
  - DEPRESSION [None]
  - DRUG INEFFECTIVE [None]
  - INAPPROPRIATE SCHEDULE OF DRUG ADMINISTRATION [None]
  - MACULAR DEGENERATION [None]
  - PRODUCT QUALITY ISSUE [None]
  - WITHDRAWAL SYNDROME [None]
  - WRONG TECHNIQUE IN DRUG USAGE PROCESS [None]
